FAERS Safety Report 5090876-X (Version None)
Quarter: 2006Q3

REPORT INFORMATION
  Report Type: 
  Country: None (occurrence: None)
  Receive Date: 20060823
  Receipt Date: 20060814
  Transmission Date: 20061208
  Serious: Yes (Hospitalization, Other)
  Sender: FDA-Public Use
  Company Number: 2006098386

PATIENT
  Age: 80 Year
  Sex: Female

DRUGS (1)
  1. ACCUPRIL [Suspect]
     Indication: HYPERTENSION
     Dosage: 20 MG (20 MG, FREQUENCY:  DAILY INTERVAL: DAILY), ORAL
     Route: 048
     Dates: start: 20060727, end: 20060804

REACTIONS (7)
  - ANGIONEUROTIC OEDEMA [None]
  - ARTHROPOD BITE [None]
  - DYSARTHRIA [None]
  - DYSPHAGIA [None]
  - EPILEPSY [None]
  - GENERAL PHYSICAL HEALTH DETERIORATION [None]
  - PSYCHOMOTOR SKILLS IMPAIRED [None]
